FAERS Safety Report 5923510-4 (Version None)
Quarter: 2008Q4

REPORT INFORMATION
  Report Type: 
  Country: None (occurrence: None)
  Receive Date: 20081020
  Receipt Date: 20081007
  Transmission Date: 20090506
  Serious: Yes (Hospitalization, Other)
  Sender: FDA-Public Use
  Company Number: CN-BAYER-200827795GPV

PATIENT
  Age: 58 Year
  Sex: Female

DRUGS (1)
  1. ASPIRIN [Suspect]
     Indication: CEREBRAL INFARCTION
     Route: 048
     Dates: start: 20080701

REACTIONS (3)
  - CEREBRAL INFARCTION [None]
  - DEAFNESS [None]
  - TINNITUS [None]
